FAERS Safety Report 6647818-2 (Version None)
Quarter: 2010Q1

REPORT INFORMATION
  Report Type: 
  Country: None (occurrence: None)
  Receive Date: 20100318
  Receipt Date: 20100310
  Transmission Date: 20100710
  Serious: Yes (Other)
  Sender: FDA-Public Use
  Company Number: 2010SP006755

PATIENT
  Age: 29 Year
  Sex: Male

DRUGS (3)
  1. MIRTAZAPINE [Suspect]
     Indication: DEPRESSION
     Dosage: 15 MG;QD; PO ;  30 MG;QD; PO
     Route: 048
     Dates: start: 20091113, end: 20091127
  2. MIRTAZAPINE [Suspect]
     Indication: DEPRESSION
     Dosage: 15 MG;QD; PO ;  30 MG;QD; PO
     Route: 048
     Dates: start: 20091128, end: 20091218
  3. FLUVOXAMINE MALEATE [Concomitant]

REACTIONS (4)
  - DYSAESTHESIA [None]
  - PAIN [None]
  - PRURITUS GENERALISED [None]
  - TREMOR [None]
